FAERS Safety Report 5693092-3 (Version None)
Quarter: 2008Q2

REPORT INFORMATION
  Report Type: 
  Country: None (occurrence: None)
  Receive Date: 20080402
  Receipt Date: 20080402
  Transmission Date: 20081010
  Serious: Yes (Other)
  Sender: FDA-Public Use
  Company Number: None

PATIENT
  Sex: Female
  Weight: 44.4525 kg

DRUGS (1)
  1. BICILLIN L-A [Suspect]
     Indication: PHARYNGITIS STREPTOCOCCAL
     Dosage: 1,200,000 UNITS PER 2 ML IM
     Route: 030
     Dates: start: 20080304

REACTIONS (4)
  - ERYTHEMA [None]
  - FEELING HOT [None]
  - INDURATION [None]
  - INFECTION [None]
